FAERS Safety Report 4534257-3 (Version None)
Quarter: 2004Q4

REPORT INFORMATION
  Report Type: 
  Country: None (occurrence: None)
  Receive Date: 20041214
  Receipt Date: 20040827
  Transmission Date: 20050328
  Serious: No
  Sender: FDA-Public Use
  Company Number: 2004232252US

PATIENT
  Age: 72 Year
  Sex: Female

DRUGS (9)
  1. BEXTRA [Suspect]
     Indication: BACK PAIN
     Dosage: 10 MG QD ORAL
     Route: 048
     Dates: start: 20040824
  2. LIPITOR [Concomitant]
  3. EFFEXOR [Concomitant]
  4. GLUCOPHAGE [Concomitant]
  5. MULTIVITAMIN [Concomitant]
  6. ATENOLOL [Concomitant]
  7. AMITRIPTYLINE [Concomitant]
  8. LISINOPRIL [Concomitant]
  9. SYNTHROID [Concomitant]

REACTIONS (3)
  - DIFFICULTY IN WALKING [None]
  - DIZZINESS [None]
  - HYPOTENSION [None]
